FAERS Safety Report 9846053 (Version 2)
Quarter: 2014Q3

REPORT INFORMATION
  Report Type: Spontaneous
  Country: US (occurrence: US)
  Receive Date: 20140127
  Receipt Date: 20140729
  Transmission Date: 20150326
  Serious: Yes (Hospitalization, Other)
  Sender: FDA-Public Use
  Company Number: US-009507513-1401USA010221

PATIENT
  Sex: Female
  Weight: 94.33 kg

DRUGS (4)
  1. NUVARING [Suspect]
     Active Substance: ETHINYL ESTRADIOL\ETONOGESTREL
     Indication: MENSTRUATION IRREGULAR
     Dosage: UNK
     Route: 067
     Dates: start: 20100610
  2. FERROUS SULFATE [Concomitant]
     Active Substance: FERROUS SULFATE\FERROUS SULFATE, DRIED
     Indication: PRODUCT USED FOR UNKNOWN INDICATION
     Dosage: 325 MG, BID
     Route: 048
  3. LISINOPRIL. [Concomitant]
     Active Substance: LISINOPRIL
     Indication: PRODUCT USED FOR UNKNOWN INDICATION
     Dosage: 5 MG, QD
     Route: 048
  4. INSULIN GLARGINE [Concomitant]
     Active Substance: INSULIN GLARGINE
     Indication: TYPE 2 DIABETES MELLITUS
     Dosage: 54 UNITS, HS

REACTIONS (23)
  - Thromboembolectomy [Unknown]
  - Urinary tract infection [Unknown]
  - Drug hypersensitivity [Unknown]
  - Angioplasty [Unknown]
  - Deep vein thrombosis [Unknown]
  - Thromboembolectomy [Unknown]
  - Antiphospholipid syndrome [Unknown]
  - Wound dehiscence [Unknown]
  - Wound infection [Unknown]
  - Impaired healing [Unknown]
  - Off label use [Unknown]
  - Peripheral artery bypass [Unknown]
  - Leg amputation [Unknown]
  - Graft thrombosis [Unknown]
  - Peripheral ischaemia [Unknown]
  - Leg amputation [Unknown]
  - Amputation [Unknown]
  - Wound haematoma [Unknown]
  - Haematoma evacuation [Unknown]
  - Drain placement [Unknown]
  - Peripheral artery thrombosis [Unknown]
  - Wound necrosis [Unknown]
  - Incisional drainage [Unknown]

NARRATIVE: CASE EVENT DATE: 20100610
